FAERS Safety Report 6597721-1 (Version None)
Quarter: 2010Q1

REPORT INFORMATION
  Report Type: 
  Country: None (occurrence: None)
  Receive Date: 20100216
  Receipt Date: 20100202
  Transmission Date: 20100710
  Serious: Yes (Hospitalization)
  Sender: FDA-Public Use
  Company Number: POMP-1000812

PATIENT
  Age: 18 Month
  Sex: Female
  Weight: 9.2 kg

DRUGS (3)
  1. MYOZYME [Suspect]
     Indication: GLYCOGEN STORAGE DISEASE TYPE II
     Dosage: 20 MG/KG, Q2W, INTRAVENOUS
     Route: 042
     Dates: start: 20080814
  2. DOMPERIDONE (DOMPERIDONE) [Concomitant]
  3. RANITIDINE HCL [Concomitant]

REACTIONS (6)
  - BLOOD IMMUNOGLOBULIN G INCREASED [None]
  - BRONCHOSPASM [None]
  - DRUG INEFFECTIVE [None]
  - HYPOTONIA [None]
  - RESPIRATORY DISTRESS [None]
  - RESPIRATORY SYNCYTIAL VIRUS BRONCHIOLITIS [None]
